FAERS Safety Report 6738800-5 (Version None)
Quarter: 2010Q2

REPORT INFORMATION
  Report Type: 
  Country: None (occurrence: None)
  Receive Date: 20100524
  Receipt Date: 20100511
  Transmission Date: 20101027
  Serious: Yes (Other)
  Sender: FDA-Public Use
  Company Number: IT-WATSON-2010-06654

PATIENT
  Age: 33 Year
  Sex: Male

DRUGS (1)
  1. METHYLPREDNISOLONE ACETATE [Suspect]
     Indication: ENCEPHALOPATHY
     Dosage: 2.5 G, TOTAL OVER 4 DAYS
     Route: 042

REACTIONS (1)
  - HEPATITIS [None]
